FAERS Safety Report 6126446-1 (Version None)
Quarter: 2009Q1

REPORT INFORMATION
  Report Type: 
  Country: None (occurrence: None)
  Receive Date: 20090318
  Receipt Date: 20090302
  Transmission Date: 20090719
  Serious: Yes (Life-Threatening)
  Sender: FDA-Public Use
  Company Number: 2009S1003810

PATIENT
  Age: 76 Year
  Sex: Male

DRUGS (7)
  1. METFORMIN HCL [Suspect]
     Indication: TYPE 2 DIABETES MELLITUS
     Dosage: 1 G; TWICE A DAY ORAL
     Route: 048
     Dates: start: 20071201, end: 20081126
  2. AMARYL [Suspect]
     Indication: TYPE 2 DIABETES MELLITUS
     Dosage: 1 MG; DAILY ORAL
     Route: 048
     Dates: start: 20071201, end: 20081126
  3. ACETYLSALICYLIC ACID SRT [Suspect]
     Indication: PROPHYLAXIS
     Dosage: 100 MG; DAILY ORAL
     Route: 048
     Dates: end: 20081126
  4. RAMIPRIL [Suspect]
     Indication: HYPERTENSION
     Dosage: 2.5 MG; DAILY ORAL
     Route: 048
  5. LOCAL (FLUVASTATIN SODIUM) [Suspect]
     Indication: HYPERCHOLESTEROLAEMIA
     Dosage: 80 MG; DAILY ORAL
     Route: 048
     Dates: end: 20081125
  6. METOPROLOL SUCCINATE [Concomitant]
  7. BERLTHYROX (LEVOTHYROXINE SODIUM) [Concomitant]

REACTIONS (3)
  - HYPOGLYCAEMIA [None]
  - RENAL FAILURE ACUTE [None]
  - RHABDOMYOLYSIS [None]
